FAERS Safety Report 15340798 (Version 3)
Quarter: 2018Q3

REPORT INFORMATION
  Report Type: Spontaneous
  Country: US (occurrence: US)
  Receive Date: 20180831
  Receipt Date: 20180914
  Transmission Date: 20181010
  Serious: Yes (Other)
  Sender: FDA-Public Use
  Company Number: US-PFIZER INC-2018351052

PATIENT

DRUGS (1)
  1. EMBEDA [Suspect]
     Active Substance: MORPHINE SULFATE\NALTREXONE HYDROCHLORIDE
     Dosage: UNK

REACTIONS (20)
  - Serotonin syndrome [Unknown]
  - Dizziness [Unknown]
  - Myalgia [Unknown]
  - Pyrexia [Unknown]
  - General physical health deterioration [Unknown]
  - Pruritus [Unknown]
  - Hypersensitivity [Unknown]
  - Irritability [Unknown]
  - Oral mucosal blistering [Unknown]
  - Blister [Unknown]
  - Stomatitis [Unknown]
  - Muscle spasms [Unknown]
  - Malaise [Unknown]
  - Fatigue [Unknown]
  - Nasal discomfort [Unknown]
  - Drug ineffective [Unknown]
  - Arthralgia [Unknown]
  - Anxiety [Unknown]
  - Headache [Unknown]
  - Hyperhidrosis [Unknown]
